FAERS Safety Report 9607931 (Version 1)
Quarter: 2013Q4

REPORT INFORMATION
  Report Type: Spontaneous
  Country: FR (occurrence: FR)
  Receive Date: 20131009
  Receipt Date: 20131009
  Transmission Date: 20140711
  Serious: Yes (Hospitalization)
  Sender: FDA-Public Use
  Company Number: FR-SA-2013SA096867

PATIENT
  Age: 73 Year
  Sex: Male

DRUGS (7)
  1. APROVEL [Suspect]
     Indication: HYPERTENSION
     Route: 048
     Dates: start: 2004, end: 20130827
  2. VELMETIA [Suspect]
     Indication: TYPE 2 DIABETES MELLITUS
     Route: 048
     Dates: start: 201109, end: 20130827
  3. FLUDEX [Suspect]
     Indication: HYPERTENSION
     Route: 048
     Dates: start: 2004, end: 20130827
  4. DETENSIEL [Suspect]
     Indication: HYPERTENSION
     Route: 048
     Dates: start: 2004, end: 20130827
  5. PREVISCAN [Suspect]
     Indication: PARACHUTE MITRAL VALVE
     Route: 048
     Dates: start: 2004, end: 20130827
  6. CRESTOR [Suspect]
     Indication: PRODUCT USED FOR UNKNOWN INDICATION
     Route: 048
     Dates: start: 2004, end: 20130827
  7. AMAREL [Concomitant]
     Dates: end: 20130824

REACTIONS (3)
  - Pancreatitis acute [Recovered/Resolved]
  - Abdominal pain [Recovered/Resolved]
  - Diarrhoea [Recovered/Resolved]
